FAERS Safety Report 7730802-5 (Version None)
Quarter: 2011Q3

REPORT INFORMATION
  Report Type: 
  Country: None (occurrence: None)
  Receive Date: 20110906
  Receipt Date: 20110822
  Transmission Date: 20111222
  Serious: Yes (Hospitalization)
  Sender: FDA-Public Use
  Company Number: SE-BAYER-2011-065210

PATIENT
  Age: 66 Year
  Sex: Male

DRUGS (7)
  1. WARFARIN SODIUM [Suspect]
     Indication: TRANSIENT ISCHAEMIC ATTACK
  2. WARFARIN SODIUM [Suspect]
     Indication: ATRIAL FIBRILLATION
     Dosage: 2.5 MG, UNK
     Route: 048
     Dates: start: 20110208, end: 20110504
  3. NAPROXEN SODIUM [Suspect]
     Indication: ANKYLOSING SPONDYLITIS
     Dosage: 250 MG, UNK
     Route: 048
     Dates: start: 20101130, end: 20110504
  4. MOVIPREP [Concomitant]
  5. AMLODIPINE [Concomitant]
  6. BISOPROLOL FUMARATE [Concomitant]
  7. ALVEDON [Concomitant]

REACTIONS (1)
  - CEREBRAL HAEMORRHAGE [None]
